FAERS Safety Report 6732486-1 (Version None)
Quarter: 2010Q2

REPORT INFORMATION
  Report Type: 
  Country: None (occurrence: None)
  Receive Date: 20100519
  Receipt Date: 20100514
  Transmission Date: 20101027
  Serious: Yes (Hospitalization)
  Sender: FDA-Public Use
  Company Number: NL-PFIZER INC-2009270254

PATIENT
  Age: 59 Year
  Sex: Male
  Weight: 94 kg

DRUGS (8)
  1. CYCLOSPORINE [Suspect]
     Indication: KIDNEY TRANSPLANT REJECTION
     Dosage: 150 MG, 2X/DAY
     Route: 048
     Dates: start: 20090116
  2. CYCLOSPORINE [Suspect]
     Dosage: 75 MG, 2X/DAY
     Route: 048
     Dates: start: 20090520, end: 20091012
  3. PREDNISOLONE [Suspect]
     Dosage: 10 MG, 1X/DAY
  4. PREDNISOLONE [Suspect]
     Dosage: 15 MG, UNK
     Route: 048
     Dates: start: 20090917
  5. MYCOPHENOLATE MOFETIL [Suspect]
     Indication: KIDNEY TRANSPLANT REJECTION
     Dosage: 500 MG, 2X/DAY
     Route: 048
     Dates: start: 20090116
  6. ESOMEPRAZOLE [Concomitant]
     Dosage: 40 MG, UNK
     Route: 048
     Dates: start: 20090407
  7. NOVORAPID [Concomitant]
     Dosage: UNK
     Route: 058
  8. LANTUS [Concomitant]
     Dosage: UNK
     Route: 058

REACTIONS (1)
  - INFECTION [None]
